FAERS Safety Report 10287449 (Version 2)
Quarter: 2014Q3

REPORT INFORMATION
  Report Type: Spontaneous
  Country: BE (occurrence: BE)
  Receive Date: 20140709
  Receipt Date: 20140709
  Transmission Date: 20150326
  Serious: Yes (Hospitalization)
  Sender: FDA-Public Use
  Company Number: PHHY2013BE012531

PATIENT
  Age: 76 Year
  Sex: Female

DRUGS (7)
  1. DESFERAL INF. [Suspect]
     Active Substance: DEFEROXAMINE MESYLATE
     Dosage: 10 UG, IN A FREQUENCY OF 5 DAYS PER WEEK
     Route: 058
     Dates: start: 20130207
  2. DESFERAL INF. [Suspect]
     Active Substance: DEFEROXAMINE MESYLATE
     Dosage: UNK UKN, UNK
     Route: 058
     Dates: start: 201404
  3. OMEPRAZOLE. [Concomitant]
     Active Substance: OMEPRAZOLE
     Dosage: UNK
  4. DESFERAL INF. [Suspect]
     Active Substance: DEFEROXAMINE MESYLATE
     Indication: MYELODYSPLASTIC SYNDROME
     Dosage: 15 UG, UNK
     Route: 058
     Dates: start: 201211, end: 20130206
  5. DESFERAL INF. [Suspect]
     Active Substance: DEFEROXAMINE MESYLATE
     Dosage: UNK UKN, 3 DAYS A WEEK
     Route: 058
  6. ELTHYRONE [Concomitant]
     Active Substance: LEVOTHYROXINE
     Indication: HYPOTHYROIDISM
     Dosage: UNK
  7. SULAR [Concomitant]
     Active Substance: NISOLDIPINE
     Dosage: 10 MG, UNK

REACTIONS (8)
  - Weight decreased [Recovered/Resolved]
  - Serum ferritin increased [Unknown]
  - Herpes zoster [Not Recovered/Not Resolved]
  - Abdominal pain [Recovered/Resolved]
  - Arthralgia [Recovered/Resolved]
  - Back pain [Unknown]
  - Diarrhoea [Recovered/Resolved]
  - Pain in extremity [Recovered/Resolved]

NARRATIVE: CASE EVENT DATE: 201211
